FAERS Safety Report 4292779-7 (Version None)
Quarter: 2004Q1

REPORT INFORMATION
  Report Type: 
  Country: None (occurrence: None)
  Receive Date: 20040210
  Receipt Date: 20040130
  Transmission Date: 20041129
  Serious: Yes (Hospitalization, Other)
  Sender: FDA-Public Use
  Company Number: 2003-07-3457

PATIENT
  Age: 30 Year
  Sex: Male
  Weight: 82 kg

DRUGS (12)
  1. RIBAVIRIN [Suspect]
     Indication: SEVERE ACUTE RESPIRATORY SYNDROME
     Dosage: 2000 MG QD ORAL
     Route: 048
     Dates: start: 20030402, end: 20030404
  2. VIRAZOLE [Suspect]
     Indication: SEVERE ACUTE RESPIRATORY SYNDROME
     Dosage: SEE IMAGE
     Route: 042
     Dates: start: 20030327, end: 20030327
  3. VIRAZOLE [Suspect]
     Indication: SEVERE ACUTE RESPIRATORY SYNDROME
     Dosage: SEE IMAGE
     Route: 042
     Dates: start: 20030327, end: 20030331
  4. VIRAZOLE [Suspect]
     Indication: SEVERE ACUTE RESPIRATORY SYNDROME
     Dosage: SEE IMAGE
     Route: 042
     Dates: start: 20030327, end: 20030402
  5. VIRAZOLE [Suspect]
     Indication: SEVERE ACUTE RESPIRATORY SYNDROME
     Dosage: SEE IMAGE
     Route: 042
     Dates: start: 20030331, end: 20030402
  6. VIRAZOLE [Suspect]
     Indication: SEVERE ACUTE RESPIRATORY SYNDROME
     Dosage: SEE IMAGE
     Route: 042
     Dates: start: 20030403, end: 20030410
  7. LEVOFLOXACIN [Suspect]
     Indication: SEVERE ACUTE RESPIRATORY SYNDROME
     Dosage: 500 MG QD ORAL
     Route: 048
     Dates: start: 20030328, end: 20030330
  8. LEVOFLOXACIN [Suspect]
     Indication: SEVERE ACUTE RESPIRATORY SYNDROME
     Dosage: 500 MG QD ORAL
     Route: 048
     Dates: start: 20030403, end: 20030410
  9. PREDNISOLOE TABLETS [Concomitant]
  10. COMBIVENT [Concomitant]
  11. FLOVENT [Concomitant]
  12. SOLU-MEDROL [Concomitant]

REACTIONS (4)
  - ALANINE AMINOTRANSFERASE INCREASED [None]
  - ASPARTATE AMINOTRANSFERASE INCREASED [None]
  - BLOOD CREATINE PHOSPHOKINASE INCREASED [None]
  - BLOOD LACTATE DEHYDROGENASE INCREASED [None]
